FAERS Safety Report 22295375 (Version 1)
Quarter: 2023Q2

REPORT INFORMATION
  Report Type: Spontaneous
  Country: US (occurrence: None)
  Receive Date: 20230505
  Receipt Date: 20230505
  Transmission Date: 20230721
  Serious: Yes (Death, Hospitalization)
  Sender: FDA-Public Use
  Company Number: None

PATIENT
  Age: 74 Year
  Sex: Female

DRUGS (16)
  1. OPSUMIT [Suspect]
     Active Substance: MACITENTAN
     Indication: Pulmonary arterial hypertension
     Dosage: 10MG QD ORAL?
     Route: 048
     Dates: start: 20210719, end: 20230302
  2. ATORVASTATIN [Concomitant]
     Active Substance: ATORVASTATIN
  3. POTASSIUM CHLORIDE [Concomitant]
     Active Substance: POTASSIUM CHLORIDE
  4. MIDODRINE [Concomitant]
     Active Substance: MIDODRINE
  5. FAMOTIDINE [Concomitant]
     Active Substance: FAMOTIDINE
  6. ALBUTEROL SULFATE [Concomitant]
     Active Substance: ALBUTEROL SULFATE
  7. ALVESCO HFA [Concomitant]
  8. TORSEMIDE [Concomitant]
     Active Substance: TORSEMIDE
  9. TYLENOL [Concomitant]
     Active Substance: ACETAMINOPHEN
  10. DOCUSATE [Concomitant]
     Active Substance: DOCUSATE
  11. ASPIRIN [Concomitant]
     Active Substance: ASPIRIN
  12. LIDOCAINE PATCH [Concomitant]
     Active Substance: LIDOCAINE
  13. DICLOFENAC TOP GEL [Concomitant]
  14. FISINE OPHT DROP [Concomitant]
  15. TRIAMCINOLONE TOP CREAM [Concomitant]
  16. NIFEDIPINE TOP OINT [Concomitant]

REACTIONS (3)
  - Syncope [None]
  - Cardiac index decreased [None]
  - Pulmonary arterial wedge pressure increased [None]

NARRATIVE: CASE EVENT DATE: 20230227
